FAERS Safety Report 18883911 (Version 1)
Quarter: 2021Q1

REPORT INFORMATION
  Report Type: Spontaneous
  Country: US (occurrence: US)
  Receive Date: 20210211
  Receipt Date: 20210211
  Transmission Date: 20210420
  Serious: Yes (Hospitalization)
  Sender: FDA-Public Use
  Company Number: None

PATIENT
  Age: 48 Year
  Sex: Female

DRUGS (21)
  1. ORENCIA [Suspect]
     Active Substance: ABATACEPT
     Indication: RHEUMATOID ARTHRITIS
     Dosage: 1 ML(125 MG)
     Route: 058
     Dates: start: 20191225
  2. CIPROFLOXACN [Concomitant]
     Active Substance: CIPROFLOXACIN
  3. HYDROCO/APAP [Concomitant]
     Active Substance: ACETAMINOPHEN\HYDROCODONE
  4. METRONIDAZOL [Concomitant]
     Active Substance: METRONIDAZOLE
  5. WAL?ZYR (CETIRIZINE HYDROCHLORIDE) [Concomitant]
     Active Substance: CETIRIZINE HYDROCHLORIDE
  6. BACLOFEN. [Concomitant]
     Active Substance: BACLOFEN
  7. LIDOCAINE. [Concomitant]
     Active Substance: LIDOCAINE
  8. METOCLOPRAM [Concomitant]
     Active Substance: METOCLOPRAMIDE
  9. AMOX/K CLAV [Concomitant]
     Active Substance: AMOXICILLIN\CLAVULANATE POTASSIUM
  10. NEURONTIN [Concomitant]
     Active Substance: GABAPENTIN
  11. PREGABALIN. [Concomitant]
     Active Substance: PREGABALIN
  12. TRAMADOL HCL [Concomitant]
     Active Substance: TRAMADOL HYDROCHLORIDE
  13. ONDANSETRON [Concomitant]
     Active Substance: ONDANSETRON
  14. DOK [Concomitant]
     Active Substance: DOCUSATE SODIUM
  15. FOLIC ACID. [Concomitant]
     Active Substance: FOLIC ACID
  16. MELOXICAM. [Concomitant]
     Active Substance: MELOXICAM
  17. OXYCODONE AND ACETAMINOPHEN [Concomitant]
     Active Substance: ACETAMINOPHEN\OXYCODONE HYDROCHLORIDE
  18. PERCOCET [Concomitant]
     Active Substance: ACETAMINOPHEN\OXYCODONE HYDROCHLORIDE
  19. METHOTREXATE. [Concomitant]
     Active Substance: METHOTREXATE
  20. NITROFURANTIN [Concomitant]
     Active Substance: NITROFURANTOIN
  21. PREDINSONE [Concomitant]
     Active Substance: PREDNISONE

REACTIONS (2)
  - Product dose omission issue [None]
  - Gastric disorder [None]

NARRATIVE: CASE EVENT DATE: 20210210
